FAERS Safety Report 8736428 (Version 2)
Quarter: 2012Q4

REPORT INFORMATION
  Report Type: Report from Study
  Country: DE (occurrence: DE)
  Receive Date: 20120822
  Receipt Date: 20120925
  Transmission Date: 20130627
  Serious: Yes (Death)
  Sender: FDA-Public Use
  Company Number: DE-ROCHE-1103832

PATIENT
  Sex: Female

DRUGS (6)
  1. ROACTEMRA [Suspect]
     Indication: RHEUMATOID ARTHRITIS
     Route: 065
     Dates: start: 201102, end: 201207
  2. PREDNISOLON [Concomitant]
     Route: 065
  3. BISOPROLOL [Concomitant]
     Route: 065
  4. TORASEMID [Concomitant]
     Route: 065
  5. ALDACTONE [Concomitant]
     Route: 065
  6. EUTHYROX [Concomitant]
     Route: 065

REACTIONS (4)
  - Cardiac arrest [Fatal]
  - Dehydration [Fatal]
  - General physical health deterioration [Fatal]
  - Multi-organ failure [Fatal]
